FAERS Safety Report 16536182 (Version 2)
Quarter: 2019Q3

REPORT INFORMATION
  Report Type: Spontaneous
  Country: US (occurrence: US)
  Receive Date: 20190705
  Receipt Date: 20190829
  Transmission Date: 20191004
  Serious: No
  Sender: FDA-Public Use
  Company Number: US-PFIZER INC-2019098803

PATIENT
  Age: 57 Year

DRUGS (3)
  1. SILDENAFIL CITRATE. [Suspect]
     Active Substance: SILDENAFIL CITRATE
     Indication: SEXUAL DYSFUNCTION
     Dosage: UNK, AS NEEDED (TAKE UP TO 5 TABLETS, ON EMPTY STOMACH,30MIN PRIOR TO SEXUAL INTERCOURSE DAILY PRN)
  2. SILDENAFIL CITRATE. [Suspect]
     Active Substance: SILDENAFIL CITRATE
     Indication: ERECTILE DYSFUNCTION
     Dosage: 20 MG, UNK
  3. SILDENAFIL CITRATE. [Suspect]
     Active Substance: SILDENAFIL CITRATE
     Dosage: 100 MG, AS NEEDED,  [DAILY]
     Route: 048

REACTIONS (3)
  - Off label use [Unknown]
  - Blood pressure increased [Unknown]
  - Product use in unapproved indication [Unknown]
